FAERS Safety Report 16001106 (Version 1)
Quarter: 2019Q1

REPORT INFORMATION
  Report Type: Spontaneous
  Country: US (occurrence: US)
  Receive Date: 20190222
  Receipt Date: 20190222
  Transmission Date: 20190418
  Serious: Yes (Life-Threatening, Other)
  Sender: FDA-Public Use
  Company Number: None

PATIENT
  Age: 17 Year
  Sex: Female
  Weight: 72.57 kg

DRUGS (1)
  1. NEXPLANON [Suspect]
     Active Substance: ETONOGESTREL

REACTIONS (6)
  - Medical device pain [None]
  - Headache [None]
  - Pregnancy with implant contraceptive [None]
  - Anxiety [None]
  - Abortion spontaneous [None]
  - Depression [None]

NARRATIVE: CASE EVENT DATE: 20180601
